FAERS Safety Report 18650028 (Version 1)
Quarter: 2020Q4

REPORT INFORMATION
  Report Type: Spontaneous
  Country: US (occurrence: US)
  Receive Date: 20201222
  Receipt Date: 20201222
  Transmission Date: 20210114
  Serious: Yes (Other)
  Sender: FDA-Public Use
  Company Number: NVSC2020US333686

PATIENT
  Sex: Female

DRUGS (1)
  1. DUREZOL [Suspect]
     Active Substance: DIFLUPREDNATE
     Indication: PRODUCT USED FOR UNKNOWN INDICATION
     Dosage: 0.05 %, UNKNOWN
     Route: 065
     Dates: start: 20170930

REACTIONS (5)
  - Glaucoma [Unknown]
  - Cataract [Unknown]
  - Optic nerve injury [Unknown]
  - Visual impairment [Unknown]
  - Ocular discomfort [Unknown]
